FAERS Safety Report 9323531 (Version 2)
Quarter: 2013Q2

REPORT INFORMATION
  Report Type: Report from Study
  Country: US (occurrence: US)
  Receive Date: 20130603
  Receipt Date: 20130606
  Transmission Date: 20140414
  Serious: Yes (Other)
  Sender: FDA-Public Use
  Company Number: US-ROCHE-1230718

PATIENT
  Sex: Female
  Weight: 49.94 kg

DRUGS (1)
  1. LUCENTIS [Suspect]
     Indication: AGE-RELATED MACULAR DEGENERATION
     Route: 050
     Dates: start: 2009

REACTIONS (2)
  - Blindness unilateral [Not Recovered/Not Resolved]
  - Fear of injection [Not Recovered/Not Resolved]
